FAERS Safety Report 10217323 (Version 1)
Quarter: 2014Q2

REPORT INFORMATION
  Report Type: Spontaneous
  Country: US (occurrence: None)
  Receive Date: 20140602
  Receipt Date: 20140602
  Transmission Date: 20141212
  Serious: Yes (Hospitalization)
  Sender: FDA-Public Use
  Company Number: US-001011

PATIENT
  Age: 45 Year
  Sex: Female

DRUGS (2)
  1. GATTEX [Suspect]
     Indication: SHORT-BOWEL SYNDROME
     Dosage: QD, STREN/VOLUM:  0.27 ML/FREQU:  DAILY SUBCUTANEOUS
     Route: 058
     Dates: start: 20140418, end: 2014
  2. SOLUTIONS FOR PARENTERAL NUTRITION [Concomitant]

REACTIONS (6)
  - Headache [None]
  - Abdominal pain lower [None]
  - Nausea [None]
  - Abdominal pain [None]
  - Vomiting [None]
  - Pyrexia [None]
